FAERS Safety Report 21654327 (Version 1)
Quarter: 2022Q4

REPORT INFORMATION
  Report Type: Spontaneous
  Country: US (occurrence: US)
  Receive Date: 20221129
  Receipt Date: 20221129
  Transmission Date: 20230112
  Serious: No
  Sender: FDA-Public Use
  Company Number: US-SA-SAC20221125000966

PATIENT
  Sex: Male
  Weight: 47.1 kg

DRUGS (24)
  1. DUPIXENT [Suspect]
     Active Substance: DUPILUMAB
     Indication: Dermatitis atopic
     Dosage: 200 MG, QOW
     Route: 058
     Dates: start: 202010
  2. PREDNISOLONE [Concomitant]
     Active Substance: PREDNISOLONE
  3. ATROPINE SULFATE [Concomitant]
     Active Substance: ATROPINE SULFATE
  4. CLONAZEPAM [Concomitant]
     Active Substance: CLONAZEPAM
  5. EPIPEN [EPINEPHRINE] [Concomitant]
  6. BENADRYL [Concomitant]
     Active Substance: DIPHENHYDRAMINE HYDROCHLORIDE
  7. DIAZEPAM [Concomitant]
     Active Substance: DIAZEPAM
  8. ZYRTEC [Concomitant]
     Active Substance: CETIRIZINE HYDROCHLORIDE
  9. TETRABENAZINE [Concomitant]
     Active Substance: TETRABENAZINE
  10. TRIAMCINOLONE ACETONIDE [Concomitant]
     Active Substance: TRIAMCINOLONE ACETONIDE
  11. HALOBETASOL PROPIONATE [Concomitant]
     Active Substance: HALOBETASOL PROPIONATE
  12. ALBUTEROL SULFATE [Concomitant]
     Active Substance: ALBUTEROL SULFATE
  13. TRAZODONE HCL [Concomitant]
     Active Substance: TRAZODONE HYDROCHLORIDE
  14. ABILIFY [Concomitant]
     Active Substance: ARIPIPRAZOLE
  15. AZELASTINE HYDROCHLORIDE [Concomitant]
     Active Substance: AZELASTINE HYDROCHLORIDE
  16. FOCALIN [Concomitant]
     Active Substance: DEXMETHYLPHENIDATE HYDROCHLORIDE
  17. DULERA [Concomitant]
     Active Substance: FORMOTEROL FUMARATE DIHYDRATE\MOMETASONE FUROATE
  18. SPIRIVA [Concomitant]
     Active Substance: TIOTROPIUM BROMIDE MONOHYDRATE
  19. OXCARBAZEPINE [Concomitant]
     Active Substance: OXCARBAZEPINE
  20. TOPIRAMATE [Concomitant]
     Active Substance: TOPIRAMATE
  21. PATADAY ONCE DAILY RELIEF [Concomitant]
     Active Substance: OLOPATADINE HYDROCHLORIDE
  22. DERMA-SMOOTHE/FS [Concomitant]
     Active Substance: FLUOCINOLONE ACETONIDE
  23. ALBUTEROL SULFATE [Concomitant]
     Active Substance: ALBUTEROL SULFATE
  24. FOCALIN XR [Concomitant]
     Active Substance: DEXMETHYLPHENIDATE HYDROCHLORIDE

REACTIONS (1)
  - Ocular hyperaemia [Not Recovered/Not Resolved]
